FAERS Safety Report 15966430 (Version 2)
Quarter: 2019Q1

REPORT INFORMATION
  Report Type: Report from Study
  Country: GB (occurrence: GB)
  Receive Date: 20190215
  Receipt Date: 20190218
  Transmission Date: 20190418
  Serious: Yes (Hospitalization, Other)
  Sender: FDA-Public Use
  Company Number: PHHY2019GB019107

PATIENT
  Age: 69 Year
  Sex: Female

DRUGS (2)
  1. COSENTYX [Suspect]
     Active Substance: SECUKINUMAB
     Indication: PSORIATIC ARTHROPATHY
     Dosage: 300 MG, QMO (ONCE PER CALENDAR MONTH) (WEEK 0, 1, 2 AND 3 - 300MG)
     Route: 058
     Dates: start: 20190121
  2. COSENTYX [Suspect]
     Active Substance: SECUKINUMAB
     Dosage: UNK (THIRD INJECTION)
     Route: 058
     Dates: start: 20190128, end: 201902

REACTIONS (10)
  - Eye swelling [Unknown]
  - Pulmonary oedema [Unknown]
  - Malaise [Unknown]
  - Tonsillitis [Unknown]
  - Infection [Unknown]
  - Acute kidney injury [Unknown]
  - Dyspnoea [Unknown]
  - Anaphylactic reaction [Unknown]
  - Swelling face [Unknown]
  - Ear infection [Unknown]

NARRATIVE: CASE EVENT DATE: 20190128
